FAERS Safety Report 9094081 (Version 4)
Quarter: 2014Q1

REPORT INFORMATION
  Report Type: Spontaneous
  Country: US (occurrence: None)
  Receive Date: 20130122
  Receipt Date: 20140221
  Transmission Date: 20141002
  Serious: Yes (Life-Threatening, Hospitalization)
  Sender: FDA-Public Use
  Company Number: EUS-2012-01051

PATIENT
  Age: 18 Year
  Sex: Male
  Weight: 71.2 kg

DRUGS (9)
  1. ERWINAZE [Suspect]
     Indication: ACUTE LYMPHOCYTIC LEUKAEMIA
     Dosage: MONDAY,WEDNESDAY + FRIDAY
     Route: 042
     Dates: start: 20121217, end: 20121228
  2. CYCLOPHOSPHAMIDE [Suspect]
     Indication: ACUTE LYMPHOCYTIC LEUKAEMIA
     Dosage: DAY 1
     Route: 042
     Dates: start: 20121205, end: 20121205
  3. ARA-C [Suspect]
     Indication: ACUTE LYMPHOCYTIC LEUKAEMIA
     Dosage: 145MG ON DAYS 1-4 AND 8-11
     Route: 042
     Dates: start: 20121205, end: 20121215
  4. MERCAPTOPURINE [Suspect]
     Indication: ACUTE LYMPHOCYTIC LEUKAEMIA
     Dosage: ON DAYS 1-14
     Route: 048
     Dates: start: 20121205, end: 20121218
  5. METHOTREXATE [Suspect]
     Indication: ACUTE LYMPHOCYTIC LEUKAEMIA
     Dosage: ON DAYS 1,8,15 AND 21
     Route: 037
     Dates: start: 20121205, end: 20121226
  6. VINCRISTINE [Suspect]
     Indication: ACUTE LYMPHOCYTIC LEUKAEMIA
     Route: 042
     Dates: start: 20121219, end: 20121226
  7. RISPERIDONE [Concomitant]
  8. BACTRIM (SULFAMETHOXAZOLE) (SULFAMETHOXAZOLE) [Concomitant]
  9. ATIVAN (LORAZEPAM) (LORAZEPAM) [Concomitant]

REACTIONS (5)
  - Staphylococcal sepsis [None]
  - Haemoglobin decreased [None]
  - Febrile neutropenia [None]
  - Cough [None]
  - Toxicity to various agents [None]
